FAERS Safety Report 24687369 (Version 1)
Quarter: 2024Q4

REPORT INFORMATION
  Report Type: Spontaneous
  Country: US (occurrence: US)
  Receive Date: 20241202
  Receipt Date: 20241202
  Transmission Date: 20250114
  Serious: Yes (Death, Hospitalization, Congenital Anomaly, Other)
  Sender: PFIZER
  Company Number: US-PFIZER INC-PV202400154625

PATIENT
  Sex: Male

DRUGS (1)
  1. DEPO-PROVERA [Suspect]
     Active Substance: MEDROXYPROGESTERONE ACETATE
     Indication: Contraception
     Dosage: UNK
     Route: 064
     Dates: start: 202302

REACTIONS (3)
  - Maternal exposure before pregnancy [Fatal]
  - Vein of Galen aneurysmal malformation [Fatal]
  - Premature baby [Unknown]

NARRATIVE: CASE EVENT DATE: 20230101
